FAERS Safety Report 10908062 (Version 1)
Quarter: 2015Q1

REPORT INFORMATION
  Report Type: Spontaneous
  Country: US (occurrence: US)
  Receive Date: 20150312
  Receipt Date: 20150312
  Transmission Date: 20150721
  Serious: No
  Sender: FDA-Public Use
  Company Number: US-BAYER-2015-034326

PATIENT
  Age: 0 Day

DRUGS (1)
  1. MIRENA [Suspect]
     Active Substance: LEVONORGESTREL
     Route: 064

REACTIONS (2)
  - Foetal exposure during pregnancy [None]
  - Neck injury [None]

NARRATIVE: CASE EVENT DATE: 20140127
